FAERS Safety Report 5401114-X (Version None)
Quarter: 2007Q3

REPORT INFORMATION
  Report Type: 
  Country: None (occurrence: None)
  Receive Date: 20070731
  Receipt Date: 20070725
  Transmission Date: 20080115
  Serious: Yes (Hospitalization)
  Sender: FDA-Public Use
  Company Number: PHEH2007US09836

PATIENT
  Age: 79 Year
  Sex: Male

DRUGS (3)
  1. TEKTURNA [Suspect]
     Indication: HYPERTENSION
     Dosage: 150 MG, QD
     Route: 048
     Dates: start: 20070509, end: 20070722
  2. HYZAAR [Concomitant]
     Indication: HYPERTENSION
     Dosage: 100/12.5 QD
     Route: 048
     Dates: start: 20051116, end: 20070622
  3. COZAAR [Concomitant]

REACTIONS (4)
  - BLOOD CREATININE INCREASED [None]
  - FATIGUE [None]
  - HEART RATE INCREASED [None]
  - RENAL ARTERY STENOSIS [None]
